FAERS Safety Report 25873596 (Version 1)
Quarter: 2025Q4

REPORT INFORMATION
  Report Type: Spontaneous
  Country: US (occurrence: US)
  Receive Date: 20251002
  Receipt Date: 20251002
  Transmission Date: 20260118
  Serious: No
  Sender: INTRA-CELLULAR THERAPIES
  Company Number: US-INTRA-CELLULAR THERAPIES, INC.-2025ICT01829

PATIENT
  Sex: Female

DRUGS (5)
  1. CAPLYTA [Suspect]
     Active Substance: LUMATEPERONE
     Indication: Bipolar II disorder
     Dosage: 21 MG, 1X/DAY
     Dates: start: 20250717, end: 2025
  2. CAPLYTA [Suspect]
     Active Substance: LUMATEPERONE
     Indication: Bipolar disorder
     Dosage: 42 MG, 2X/DAY
     Dates: start: 2025, end: 2025
  3. CAPLYTA [Suspect]
     Active Substance: LUMATEPERONE
     Dosage: 42 MG, 1X/DAY AT NIGHT
     Dates: start: 2025
  4. CAPLYTA [Suspect]
     Active Substance: LUMATEPERONE
     Dosage: 21 MG, 1X/DAY AT 3 PM
     Dates: start: 2025
  5. XANAX [Suspect]
     Active Substance: ALPRAZOLAM
     Dosage: 1 MG

REACTIONS (6)
  - Brain fog [Recovering/Resolving]
  - Aphasia [Recovering/Resolving]
  - Withdrawal syndrome [Recovering/Resolving]
  - Therapeutic response shortened [Recovering/Resolving]
  - Headache [Recovering/Resolving]
  - Off label use [Not Recovered/Not Resolved]

NARRATIVE: CASE EVENT DATE: 20250101
